FAERS Safety Report 10297504 (Version 2)
Quarter: 2014Q3

REPORT INFORMATION
  Report Type: Spontaneous
  Country: JP (occurrence: JP)
  Receive Date: 20140711
  Receipt Date: 20140711
  Transmission Date: 20150326
  Serious: Yes (Other)
  Sender: FDA-Public Use
  Company Number: PHHY2014JP065233

PATIENT
  Age: 75 Year
  Sex: Male

DRUGS (1)
  1. DIOVAN [Suspect]
     Active Substance: VALSARTAN
     Indication: HYPERTENSION
     Dosage: 80 MG, DAILY
     Route: 048
     Dates: end: 20140220

REACTIONS (11)
  - Skin exfoliation [Unknown]
  - Eosinophil count increased [Unknown]
  - Prurigo [Unknown]
  - Eczema [Unknown]
  - Hyperkeratosis [Unknown]
  - Dry skin [Unknown]
  - Rash [Recovering/Resolving]
  - Papule [Unknown]
  - Erythema [Unknown]
  - Blood immunoglobulin E increased [Unknown]
  - Dermatitis [Unknown]

NARRATIVE: CASE EVENT DATE: 20131010
